FAERS Safety Report 7461165-0 (Version None)
Quarter: 2011Q2

REPORT INFORMATION
  Report Type: 
  Country: None (occurrence: None)
  Receive Date: 20110505
  Receipt Date: 20110427
  Transmission Date: 20111010
  Serious: Yes (Hospitalization, Other)
  Sender: FDA-Public Use
  Company Number: CZ-ABBOTT-11P-217-0714041-00

PATIENT
  Sex: Female
  Weight: 95 kg

DRUGS (4)
  1. SULFASALAZINE [Concomitant]
     Indication: PRODUCT USED FOR UNKNOWN INDICATION
  2. AKTIFERRIN [Concomitant]
     Indication: PRODUCT USED FOR UNKNOWN INDICATION
  3. HUMIRA [Suspect]
     Indication: PRODUCT USED FOR UNKNOWN INDICATION
     Dates: end: 20110224
  4. HELICID [Concomitant]
     Indication: PRODUCT USED FOR UNKNOWN INDICATION

REACTIONS (17)
  - SUICIDAL IDEATION [None]
  - MENTAL IMPAIRMENT [None]
  - MENTAL DISORDER [None]
  - FEELING ABNORMAL [None]
  - THINKING ABNORMAL [None]
  - ANOSOGNOSIA [None]
  - SENSORY DISTURBANCE [None]
  - AFFECTIVE DISORDER [None]
  - ANXIETY DISORDER [None]
  - HALLUCINATION, AUDITORY [None]
  - ACUTE PSYCHOSIS [None]
  - PSYCHOTIC DISORDER [None]
  - STARING [None]
  - PARANOIA [None]
  - ILLUSION [None]
  - DEPRESSION [None]
  - EXECUTIVE DYSFUNCTION [None]
